FAERS Safety Report 6181371-5 (Version None)
Quarter: 2009Q2

REPORT INFORMATION
  Report Type: 
  Country: None (occurrence: None)
  Receive Date: 20090506
  Receipt Date: 20090501
  Transmission Date: 20091009
  Serious: Yes (Other)
  Sender: FDA-Public Use
  Company Number: US-ELI_LILLY_AND_COMPANY-US200905000203

PATIENT
  Age: 50 Year
  Sex: Male

DRUGS (3)
  1. BYETTA [Suspect]
     Indication: TYPE 2 DIABETES MELLITUS
     Dosage: UNK, UNKNOWN
     Dates: start: 20070901, end: 20070101
  2. BYETTA [Suspect]
     Dosage: UNK, UNKNOWN
     Dates: start: 20080801, end: 20090414
  3. ZOCOR [Concomitant]
     Dates: end: 20090414

REACTIONS (2)
  - NAUSEA [None]
  - PANCREATITIS [None]
